FAERS Safety Report 6142350-7 (Version None)
Quarter: 2009Q2

REPORT INFORMATION
  Report Type: 
  Country: None (occurrence: None)
  Receive Date: 20090403
  Receipt Date: 20090311
  Transmission Date: 20091009
  Serious: Yes (Hospitalization)
  Sender: FDA-Public Use
  Company Number: DE-JNJFOC-20090303478

PATIENT
  Sex: Female
  Weight: 106 kg

DRUGS (7)
  1. HALOPERIDOL DECANOATE [Suspect]
     Route: 030
  2. HALOPERIDOL DECANOATE [Suspect]
     Route: 030
  3. HALOPERIDOL DECANOATE [Suspect]
     Indication: SCHIZOPHRENIA
     Route: 030
  4. ATACAND [Concomitant]
     Indication: HYPERTENSION
     Route: 065
  5. RAMIPRIL [Concomitant]
     Indication: HYPERTENSION
     Route: 065
  6. CLONIDINE [Concomitant]
     Indication: HYPERTENSION
     Route: 065
  7. NEXIUM [Concomitant]
     Indication: PROPHYLAXIS
     Route: 065

REACTIONS (2)
  - ACCIDENTAL OVERDOSE [None]
  - HYPOTENSION [None]
